FAERS Safety Report 9688168 (Version 1)
Quarter: 2013Q4

REPORT INFORMATION
  Report Type: Spontaneous
  Country: US (occurrence: US)
  Receive Date: 20131114
  Receipt Date: 20131114
  Transmission Date: 20140711
  Serious: Yes (Other)
  Sender: FDA-Public Use
  Company Number: US-JNJFOC-20131104199

PATIENT
  Sex: Male
  Weight: 70.31 kg

DRUGS (17)
  1. XARELTO [Suspect]
     Indication: CARDIOMYOPATHY
     Route: 048
     Dates: start: 2012
  2. XARELTO [Suspect]
     Indication: CEREBROVASCULAR ACCIDENT PROPHYLAXIS
     Route: 048
     Dates: start: 2012
  3. XARELTO [Suspect]
     Indication: ATRIAL FIBRILLATION
     Route: 048
     Dates: start: 2012
  4. VERAPAMIL SR NOS [Concomitant]
     Indication: CARDIAC DISORDER
     Route: 048
  5. VERAPAMIL SR NOS [Concomitant]
     Indication: BLOOD PRESSURE
     Route: 048
  6. METOPROLOL [Concomitant]
     Indication: CARDIAC DISORDER
     Dosage: 50MG + 62.5 MG 1TABLET 1CE DAILY EVERY OTHER DAY ALTERNATED WITH 1TABLET + 1/4 TABLET THE OTHER DAY
     Route: 048
  7. METOPROLOL [Concomitant]
     Indication: BLOOD PRESSURE
     Dosage: 50MG + 62.5 MG 1TABLET 1CE DAILY EVERY OTHER DAY ALTERNATED WITH 1TABLET + 1/4 TABLET THE OTHER DAY
     Route: 048
  8. ASPIRIN [Concomitant]
     Indication: CARDIAC DISORDER
     Route: 048
  9. FOLIC ACID [Concomitant]
     Indication: CARDIAC DISORDER
     Dosage: 1 TABLET EVERY OTHER DAY
     Route: 048
  10. COQ10 [Concomitant]
     Indication: CARDIAC DISORDER
     Route: 048
  11. MAGNESIUM [Concomitant]
     Indication: CARDIAC DISORDER
     Route: 048
  12. BREWER^S YEAST [Concomitant]
     Indication: EYE DISORDER
     Route: 048
  13. SAW PALMETTO [Concomitant]
     Indication: PROSTATIC DISORDER
     Route: 048
  14. VITAMIN D3 [Concomitant]
     Indication: ROUTINE HEALTH MAINTENANCE
     Route: 048
  15. FISH OIL [Concomitant]
     Route: 048
  16. HYALURONIC ACID [Concomitant]
     Indication: ARTHRALGIA
     Route: 048
  17. SITOSTEROL [Concomitant]
     Indication: BLOOD CHOLESTEROL
     Route: 048
     Dates: start: 2013

REACTIONS (4)
  - Blood creatine phosphokinase increased [Unknown]
  - Myalgia [Not Recovered/Not Resolved]
  - Muscle atrophy [Unknown]
  - Inflammation [Unknown]
